FAERS Safety Report 5794505-9 (Version None)
Quarter: 2008Q2

REPORT INFORMATION
  Report Type: 
  Country: None (occurrence: None)
  Receive Date: 20080619
  Receipt Date: 20080611
  Transmission Date: 20081010
  Serious: Yes (Hospitalization)
  Sender: FDA-Public Use
  Company Number: 200813724

PATIENT
  Age: 21 Year
  Sex: Male

DRUGS (12)
  1. SANDOGLOBULIN [Suspect]
     Indication: OPSOCLONUS MYOCLONUS
     Dosage: 34 G DAILY IV; IV
     Route: 042
     Dates: start: 20080527, end: 20080531
  2. SANDOGLOBULIN [Suspect]
     Indication: OPSOCLONUS MYOCLONUS
     Dosage: 34 G DAILY IV; IV
     Route: 042
     Dates: start: 20080527, end: 20080531
  3. SANDOGLOBULIN [Suspect]
     Indication: OPSOCLONUS MYOCLONUS
     Dosage: 34 G DAILY IV; IV
     Route: 042
     Dates: start: 20080527, end: 20080531
  4. SANDOGLOBULIN [Suspect]
     Indication: OPSOCLONUS MYOCLONUS
     Dosage: 34 G DAILY IV; IV
     Route: 042
     Dates: start: 20080527, end: 20080531
  5. SANDOGLOBULIN [Suspect]
     Indication: OPSOCLONUS MYOCLONUS
     Dosage: 34 G DAILY IV; IV
     Route: 042
     Dates: start: 20080527, end: 20080531
  6. SANDOGLOBULIN [Suspect]
     Indication: OPSOCLONUS MYOCLONUS
     Dosage: 34 G DAILY IV; IV
     Route: 042
     Dates: start: 20080527, end: 20080531
  7. CORTANCYL [Concomitant]
  8. OMEPRAZOLE [Concomitant]
  9. CACIT D3 [Concomitant]
  10. SANDOGLOBULIN [Suspect]
  11. SANDOGLOBULIN [Suspect]
  12. SANDOGLOBULIN [Suspect]

REACTIONS (14)
  - ABDOMINAL PAIN UPPER [None]
  - ALANINE AMINOTRANSFERASE INCREASED [None]
  - ASPARTATE AMINOTRANSFERASE INCREASED [None]
  - BLOOD SODIUM DECREASED [None]
  - DIARRHOEA [None]
  - DYSPEPSIA [None]
  - EPISTAXIS [None]
  - FATIGUE [None]
  - NYSTAGMUS [None]
  - PROTEIN TOTAL INCREASED [None]
  - PYREXIA [None]
  - TACHYCARDIA [None]
  - TREMOR [None]
  - VOMITING [None]
